FAERS Safety Report 4588318-3 (Version None)
Quarter: 2005Q1

REPORT INFORMATION
  Report Type: 
  Country: None (occurrence: None)
  Receive Date: 20050216
  Receipt Date: 20050204
  Transmission Date: 20050727
  Serious: Yes (Hospitalization)
  Sender: FDA-Public Use
  Company Number: 2005AP00968

PATIENT
  Age: 34 Year
  Sex: Female
  Weight: 60 kg

DRUGS (6)
  1. PROPOFOL [Suspect]
     Dosage: 150 MG DAILU IV
     Route: 042
  2. AROPAX [Suspect]
     Indication: DEPRESSION
  3. PROZAC [Suspect]
     Indication: DEPRESSION
  4. TRAMAL [Suspect]
     Indication: PAIN
     Dosage: 100 MG DAILY IV
     Route: 042
     Dates: start: 20030827, end: 20030827
  5. TORADOL [Suspect]
     Indication: PAIN
     Dosage: 100 MG DAILY SQ
     Route: 058
     Dates: start: 20030827, end: 20030827
  6. ATRACURIUM BESYLATE [Suspect]
     Dosage: 15 MG DAILY IV
     Route: 042

REACTIONS (5)
  - HYPERTONIA [None]
  - MUTISM [None]
  - SEROTONIN SYNDROME [None]
  - SOMNOLENCE [None]
  - TREMOR [None]
